FAERS Safety Report 21336614 (Version 3)
Quarter: 2022Q4

REPORT INFORMATION
  Report Type: Spontaneous
  Country: NL (occurrence: NL)
  Receive Date: 20220915
  Receipt Date: 20221014
  Transmission Date: 20230112
  Serious: Yes (Other)
  Sender: FDA-Public Use
  Company Number: NL-Accord-262481

PATIENT
  Age: 10 Year
  Sex: Female
  Weight: 40 kg

DRUGS (6)
  1. CISPLATIN [Suspect]
     Active Substance: CISPLATIN
     Indication: Adrenocortical carcinoma
     Route: 042
     Dates: start: 201606, end: 201612
  2. ETOPOSIDE [Suspect]
     Active Substance: ETOPOSIDE
     Indication: Adrenocortical carcinoma
     Route: 042
     Dates: start: 201606, end: 201612
  3. DOXORUBICIN [Suspect]
     Active Substance: DOXORUBICIN
     Indication: Adrenocortical carcinoma
     Route: 042
     Dates: start: 201606, end: 201612
  4. MITOTANE [Concomitant]
     Active Substance: MITOTANE
     Indication: Adrenocortical carcinoma
     Dosage: AT ADEQUATE PLASMA LEVELS WITH AN AVERAGE DOSE OF 3.5 G PER DAY (2-7 GRAM PER DAY)
     Route: 048
  5. HYDROCORTISONE [Concomitant]
     Active Substance: HYDROCORTISONE
     Indication: Supplementation therapy
     Dates: start: 2016
  6. FLUDROCORTISONE [Concomitant]
     Active Substance: FLUDROCORTISONE
     Indication: Supplementation therapy
     Dates: start: 2016

REACTIONS (4)
  - Neutropenia [Recovered/Resolved]
  - Anaemia [Recovered/Resolved]
  - Stomatitis [Recovered/Resolved]
  - Off label use [Unknown]

NARRATIVE: CASE EVENT DATE: 20160701
